FAERS Safety Report 6467054-2 (Version None)
Quarter: 2009Q4

REPORT INFORMATION
  Report Type: 
  Country: None (occurrence: None)
  Receive Date: 20091127
  Receipt Date: 20091117
  Transmission Date: 20100525
  Serious: Yes (Death, Other)
  Sender: FDA-Public Use
  Company Number: ADR51242009

PATIENT
  Age: 72 Year
  Sex: Male

DRUGS (4)
  1. SERTRALINE HCL [Suspect]
     Indication: DEPRESSION
     Dosage: 50 MG
  2. AMANTADINE [Concomitant]
  3. BACLOFEN [Concomitant]
  4. CO-BENELDOPA [Concomitant]

REACTIONS (13)
  - CEREBROVASCULAR ACCIDENT [None]
  - CIRCULATORY COLLAPSE [None]
  - CONDITION AGGRAVATED [None]
  - DEPRESSION [None]
  - DISEASE RECURRENCE [None]
  - FATIGUE [None]
  - HICCUPS [None]
  - HYPONATRAEMIA [None]
  - INSOMNIA [None]
  - LOCALISED INTRAABDOMINAL FLUID COLLECTION [None]
  - ORTHOSTATIC HYPOTENSION [None]
  - PROCEDURAL COMPLICATION [None]
  - SOMNOLENCE [None]
